FAERS Safety Report 7524965-4 (Version None)
Quarter: 2011Q2

REPORT INFORMATION
  Report Type: 
  Country: None (occurrence: None)
  Receive Date: 20110606
  Receipt Date: 20110524
  Transmission Date: 20111010
  Serious: Yes (Other)
  Sender: FDA-Public Use
  Company Number: US-ELI_LILLY_AND_COMPANY-US201105008598

PATIENT
  Sex: Male

DRUGS (1)
  1. CYMBALTA [Suspect]
     Dosage: 30 MG, UNK
     Dates: start: 20110518

REACTIONS (5)
  - HYPERHIDROSIS [None]
  - CONFUSIONAL STATE [None]
  - MUSCLE TWITCHING [None]
  - LOSS OF CONSCIOUSNESS [None]
  - FEELING HOT [None]
